FAERS Safety Report 18294338 (Version 1)
Quarter: 2020Q3

REPORT INFORMATION
  Report Type: Spontaneous
  Country: US (occurrence: US)
  Receive Date: 20200921
  Receipt Date: 20200921
  Transmission Date: 20201103
  Serious: Yes (Death)
  Sender: FDA-Public Use
  Company Number: None

PATIENT
  Age: 64 Year
  Sex: Female

DRUGS (19)
  1. FENTANYL. [Concomitant]
     Active Substance: FENTANYL
  2. GRANISETRON [Concomitant]
     Active Substance: GRANISETRON
  3. OXYCODONE [Concomitant]
     Active Substance: OXYCODONE
  4. ALBUTEROL AER [Concomitant]
     Active Substance: ALBUTEROL
  5. GABAPENTIN. [Concomitant]
     Active Substance: GABAPENTIN
  6. LORAZEPAM. [Concomitant]
     Active Substance: LORAZEPAM
  7. CAPECITABINE 500MG TAB [Suspect]
     Active Substance: CAPECITABINE
     Indication: BREAST CANCER FEMALE
     Dosage: ?          OTHER DOSE:3?2 TABS ;OTHER FREQUENCY:QAM?QPM;?
     Route: 048
     Dates: start: 20200514, end: 20200913
  8. SPIRONOLACT [Concomitant]
     Active Substance: SPIRONOLACTONE
  9. MORPHINE SUL [Concomitant]
     Active Substance: MORPHINE SULFATE
  10. PRAMIPEXOLE. [Concomitant]
     Active Substance: PRAMIPEXOLE
  11. TAMOIXIFEN [Concomitant]
  12. TRAZODONE [Concomitant]
     Active Substance: TRAZODONE HYDROCHLORIDE
  13. VENLAFAXINE [Concomitant]
     Active Substance: VENLAFAXINE HYDROCHLORIDE
  14. VITAMIN D [Concomitant]
     Active Substance: VITAMIN D NOS
  15. ALPRAZOLAM. [Concomitant]
     Active Substance: ALPRAZOLAM
  16. BUPROPION. [Concomitant]
     Active Substance: BUPROPION
  17. FUROSEMIDE. [Concomitant]
     Active Substance: FUROSEMIDE
  18. TYKERB [Concomitant]
     Active Substance: LAPATINIB DITOSYLATE
  19. HYDROCO/APAP [Concomitant]
     Active Substance: ACETAMINOPHEN\HYDROCODONE

REACTIONS (1)
  - Death [None]

NARRATIVE: CASE EVENT DATE: 20200913
